FAERS Safety Report 6032611-4 (Version None)
Quarter: 2009Q1

REPORT INFORMATION
  Report Type: 
  Country: None (occurrence: None)
  Receive Date: 20090109
  Receipt Date: 20081229
  Transmission Date: 20090719
  Serious: Yes (Other)
  Sender: FDA-Public Use
  Company Number: PHHY2008BR33364

PATIENT
  Sex: Male
  Weight: 65 kg

DRUGS (21)
  1. MYFORTIC [Suspect]
     Indication: TRANSPLANT REJECTION
     Dosage: 180 MG, UNK
     Route: 048
  2. MYFORTIC [Suspect]
     Dosage: 320 MG, UNK
     Route: 048
  3. PREDNISOLONE [Concomitant]
     Dosage: 20 MG
  4. PREDNISOLONE [Concomitant]
     Dosage: 15 MG
  5. PREDNISOLONE [Concomitant]
     Dosage: 10 MG
  6. PREDNISOLONE [Concomitant]
     Dosage: 5 MG, ONE TABLET AT 9AM
  7. NIFEDIPINE [Concomitant]
     Indication: BLOOD PRESSURE
     Dosage: ONE TABLET EVERY 8 HOURS
     Dates: start: 19940101
  8. NIFEDIPINE [Concomitant]
     Dosage: ONE TABLET EVERY 12 HOURS
  9. GLIMEPIRIDE [Concomitant]
     Indication: BLOOD GLUCOSE INCREASED
     Dosage: ONE TABLET DAILY
     Route: 048
  10. GLIMEPIRIDE [Concomitant]
     Dosage: TWO TABLETS DAILY
  11. GLIMEPIRIDE [Concomitant]
     Dosage: FOUR TABLETS DAILY
     Dates: start: 20081216
  12. BACTRIM [Concomitant]
     Indication: ANTIBIOTIC THERAPY
     Dosage: 2 TABLETS ON MONDAY, WEDNESDAY AND FRIDAY
     Route: 048
  13. OMEPRAZOLE [Concomitant]
     Dosage: 20 MG 7AM, 20 MG PM
     Route: 048
  14. SIMVASTATIN [Concomitant]
     Indication: BLOOD CHOLESTEROL INCREASED
     Dosage: ONE TABLET AFTER DINNER
     Route: 048
  15. ASPIRIN [Concomitant]
     Dosage: ONE TABLET AFTER LUNCH
     Route: 048
  16. COMPLEX B FORTE [Concomitant]
     Dosage: ONE TABLET EVERY 12 HOURS
     Route: 048
  17. FOLIC ACID [Concomitant]
     Dosage: ONE TABLET EVERY 12 HOURS
     Route: 048
  18. PROPRANOLOL [Concomitant]
     Indication: BLOOD PRESSURE
     Dosage: ONE TABLET EVERY 12 HOURS
     Route: 048
     Dates: start: 19940101
  19. METFORMIN HYDROCHLORIDE [Concomitant]
     Indication: BLOOD GLUCOSE INCREASED
     Dosage: 850 MG, ONE TABLET AFTER THE BREAKFAST AND ONE TABLET AT DINNER
     Route: 048
  20. PROGRAF [Concomitant]
     Indication: TRANSPLANT REJECTION
     Dosage: 4 MG, BID
     Route: 048
  21. PROGRAF [Concomitant]
     Dosage: 3 MG, BID
     Route: 048

REACTIONS (4)
  - BLOOD GLUCOSE INCREASED [None]
  - BLOOD PRESSURE DECREASED [None]
  - INFLUENZA [None]
  - SOMNOLENCE [None]
